FAERS Safety Report 9793255 (Version 1)
Quarter: 2013Q4

REPORT INFORMATION
  Report Type: Spontaneous
  Country: DE (occurrence: None)
  Receive Date: 20131230
  Receipt Date: 20131230
  Transmission Date: 20140711
  Serious: Yes (Other)
  Sender: FDA-Public Use
  Company Number: 2013DE00867

PATIENT
  Sex: 0

DRUGS (5)
  1. CARBOPLATIN (CARBOPLATIN) INJECTION [Suspect]
     Indication: SARCOMA
     Dosage: APPLIED ON DAYS A 4-2
     Route: 042
  2. ETOPOSIDE (ETOPOSIDE) [Suspect]
     Indication: SARCOMA
     Dosage: APPLIED ON DAYS A 4-2
     Route: 042
  3. IFOSFAMIDE (IFOSFAMIDE) [Suspect]
     Indication: SARCOMA
     Dosage: AS A 24-H CONTINUOUS INFUSION ON DAY 1-3 RESULTING IN 12 G/M2 OVER 72 H.
  4. DOXORUBICIN [Suspect]
     Indication: SARCOMA
     Dosage: AS A 4-H INFUSION ON DAY 1
  5. RADIATION THERAPY [Suspect]
     Indication: SARCOMA
     Dosage: GY/DAY 5 TIMES A WEEK UP TO 45 GY

REACTIONS (1)
  - Myelodysplastic syndrome [None]
